FAERS Safety Report 6238815-X (Version None)
Quarter: 2009Q2

REPORT INFORMATION
  Report Type: 
  Country: None (occurrence: None)
  Receive Date: 20090617
  Receipt Date: 20090617
  Transmission Date: 20091009
  Serious: No
  Sender: FDA-Public Use
  Company Number: None

PATIENT
  Age: 59 Year
  Sex: Female
  Weight: 74.8435 kg

DRUGS (1)
  1. ZICAM NASAL GEL SWAB MATRIXX [Suspect]
     Indication: NASOPHARYNGITIS
     Dosage: 1 SWAB 3 X A DAY
     Dates: start: 20090505, end: 20090508

REACTIONS (2)
  - AGEUSIA [None]
  - ANOSMIA [None]
